FAERS Safety Report 15525140 (Version 3)
Quarter: 2020Q1

REPORT INFORMATION
  Report Type: Report from Study
  Country: EG (occurrence: EG)
  Receive Date: 20181019
  Receipt Date: 20200213
  Transmission Date: 20200409
  Serious: Yes (Hospitalization, Other)
  Sender: FDA-Public Use
  Company Number: EG-SEATTLE GENETICS-2018SGN01256

PATIENT
  Sex: Female

DRUGS (1)
  1. BRENTUXIMAB VEDOTIN-MPI [Suspect]
     Active Substance: BRENTUXIMAB VEDOTIN
     Indication: HODGKIN^S DISEASE
     Dosage: UNK
     Route: 042
     Dates: start: 20180407, end: 20200209

REACTIONS (10)
  - White blood cell count decreased [Recovering/Resolving]
  - Pneumonia [Unknown]
  - Stress [Unknown]
  - Oesophagitis [Unknown]
  - Gastritis [Unknown]
  - Heart rate increased [Unknown]
  - Influenza [Recovering/Resolving]
  - Fatigue [Recovering/Resolving]
  - Enteritis [Unknown]
  - Neuropathy peripheral [Unknown]
